FAERS Safety Report 10702043 (Version 3)
Quarter: 2015Q2

REPORT INFORMATION
  Report Type: Spontaneous
  Country: US (occurrence: US)
  Receive Date: 20150109
  Receipt Date: 20150430
  Transmission Date: 20150821
  Serious: Yes (Hospitalization)
  Sender: FDA-Public Use
  Company Number: US-UNITED THERAPEUTICS-UNT-2015-000006

PATIENT
  Age: 71 Year
  Sex: Female
  Weight: 79.37 kg

DRUGS (4)
  1. REMODULIN [Suspect]
     Active Substance: TREPROSTINIL
     Indication: PULMONARY ARTERIAL HYPERTENSION
     Dosage: 0.070 ?G/KG/MIN, CONTINUING
     Route: 041
     Dates: start: 20131209
  2. REMODULIN [Suspect]
     Active Substance: TREPROSTINIL
     Dosage: 0.1073 ?G/KG/MIN, CONTINUING
     Route: 041
  3. REMODULIN [Suspect]
     Active Substance: TREPROSTINIL
     Dosage: 0.070 ?G/KG/MIN, CONTINUING
     Route: 041
  4. ADCIRCA [Concomitant]
     Active Substance: TADALAFIL
     Indication: PRODUCT USED FOR UNKNOWN INDICATION

REACTIONS (8)
  - Sepsis [Unknown]
  - Urinary tract infection [Unknown]
  - Malaise [Unknown]
  - Drug dose omission [Unknown]
  - Pyrexia [Unknown]
  - Tooth infection [Unknown]
  - Influenza [Unknown]
  - Device occlusion [Unknown]

NARRATIVE: CASE EVENT DATE: 201412
